FAERS Safety Report 16563524 (Version 1)
Quarter: 2019Q3

REPORT INFORMATION
  Report Type: Other
  Country: CN (occurrence: CN)
  Receive Date: 20190712
  Receipt Date: 20190712
  Transmission Date: 20191004
  Serious: Yes (Other)
  Sender: FDA-Public Use
  Company Number: CN-AGG-01-2019-1075

PATIENT

DRUGS (1)
  1. AGGRASTAT [Suspect]
     Active Substance: TIROFIBAN HYDROCHLORIDE
     Indication: ANTIPLATELET THERAPY
     Dosage: 0.25-1.0 MG VIA MICROCATHETER NEAR THE OCCLUSION AT A RATE OF 1 ML/MINUTE (0.05 MG/ML)
     Route: 013

REACTIONS (1)
  - Haemorrhage intracranial [Unknown]
